APPROVED DRUG PRODUCT: CASPOFUNGIN ACETATE
Active Ingredient: CASPOFUNGIN ACETATE
Strength: 70MG/VIAL
Dosage Form/Route: POWDER;INTRAVENOUS
Application: A216506 | Product #002 | TE Code: AP
Applicant: HANGZHOU ZHONGMEI HUADONG PHARMACEUTICAL CO LTD
Approved: Jul 18, 2025 | RLD: No | RS: No | Type: RX